FAERS Safety Report 18742763 (Version 1)
Quarter: 2021Q1

REPORT INFORMATION
  Report Type: Spontaneous
  Country: US (occurrence: US)
  Receive Date: 20210114
  Receipt Date: 20210114
  Transmission Date: 20210419
  Serious: No
  Sender: FDA-Public Use
  Company Number: US-NOVOPROD-744317

PATIENT
  Age: 50 Year
  Sex: Female

DRUGS (2)
  1. OZEMPIC [Suspect]
     Active Substance: SEMAGLUTIDE
     Indication: TYPE 2 DIABETES MELLITUS
     Dosage: 1 MG, QW
     Route: 058
     Dates: start: 2019
  2. OZEMPIC [Suspect]
     Active Substance: SEMAGLUTIDE
     Dosage: 1 UNK
     Route: 058
     Dates: start: 2020

REACTIONS (5)
  - Depression [Recovered/Resolved]
  - Anxiety [Unknown]
  - Anxiety [Recovered/Resolved]
  - Blood glucose increased [Unknown]
  - Depression [Unknown]

NARRATIVE: CASE EVENT DATE: 2019
